FAERS Safety Report 9877283 (Version 2)
Quarter: 2014Q1

REPORT INFORMATION
  Report Type: Spontaneous
  Country: DE (occurrence: DE)
  Receive Date: 20140206
  Receipt Date: 20140206
  Transmission Date: 20141002
  Serious: Yes (Other)
  Sender: FDA-Public Use
  Company Number: DE-ASTELLAS-2013EU009975

PATIENT
  Age: 44 Year
  Sex: Female
  Weight: 57 kg

DRUGS (2)
  1. PROTOPIC [Suspect]
     Indication: DERMATITIS ATOPIC
     Dosage: UNK
     Route: 050
     Dates: start: 20130925, end: 20131115
  2. DERMOSOLON                         /00016201/ [Concomitant]
     Indication: ALOPECIA
     Dosage: UNK
     Route: 065
     Dates: start: 20131008, end: 20131011

REACTIONS (4)
  - Face oedema [Recovered/Resolved]
  - Acne [Unknown]
  - Rosacea [Recovered/Resolved]
  - Oedema peripheral [Unknown]
